FAERS Safety Report 13265868 (Version 4)
Quarter: 2017Q1

REPORT INFORMATION
  Report Type: Report from Study
  Country: FR (occurrence: FR)
  Receive Date: 20170223
  Receipt Date: 20170330
  Transmission Date: 20170428
  Serious: Yes (Other)
  Sender: FDA-Public Use
  Company Number: PHHY2016FR171191

PATIENT
  Age: 74 Year
  Sex: Female

DRUGS (2)
  1. EXEMESTANE. [Suspect]
     Active Substance: EXEMESTANE
     Indication: BREAST CANCER
     Dosage: 25 MG, QD
     Route: 065
     Dates: start: 20160310, end: 20160706
  2. AFINITOR [Suspect]
     Active Substance: EVEROLIMUS
     Indication: BREAST CANCER
     Dosage: 5 MG, QD
     Route: 065
     Dates: start: 20160310, end: 20160531

REACTIONS (9)
  - Hepatotoxicity [Recovered/Resolved]
  - Epistaxis [Recovered/Resolved]
  - Localised infection [Recovered/Resolved]
  - Pleural thickening [Unknown]
  - Interstitial lung disease [Recovered/Resolved]
  - Bronchiectasis [Unknown]
  - Cardiac failure [Unknown]
  - Stomatitis [Recovered/Resolved]
  - Pneumonitis [Recovered/Resolved]

NARRATIVE: CASE EVENT DATE: 201603
